FAERS Safety Report 23890447 (Version 1)
Quarter: 2024Q2

REPORT INFORMATION
  Report Type: Report from Study
  Country: CL (occurrence: CL)
  Receive Date: 20240523
  Receipt Date: 20240523
  Transmission Date: 20240715
  Serious: No
  Sender: FDA-Public Use
  Company Number: CL-JNJFOC-20240519418

PATIENT
  Age: 75 Year
  Sex: Female

DRUGS (1)
  1. SIMPONI [Suspect]
     Active Substance: GOLIMUMAB
     Indication: Rheumatoid arthritis
     Dosage: 50.00 MG / 0.50 ML
     Route: 058
     Dates: start: 20240229

REACTIONS (3)
  - Device deployment issue [Unknown]
  - Device defective [Unknown]
  - Inappropriate schedule of product administration [Unknown]

NARRATIVE: CASE EVENT DATE: 20240428
